FAERS Safety Report 9257086 (Version 1)
Quarter: 2013Q2

REPORT INFORMATION
  Report Type: Spontaneous
  Country: GB (occurrence: None)
  Receive Date: 20130424
  Receipt Date: 20130424
  Transmission Date: 20140414
  Serious: Yes (Hospitalization, Other)
  Sender: FDA-Public Use
  Company Number: GER/UKI/13/0029183

PATIENT
  Age: 74 Year
  Sex: Female

DRUGS (13)
  1. LEVOFLOXACIN (LEVOFLOXACIN) [Suspect]
     Indication: URINARY TRACT INFECTION
     Dosage: 500 MG, 2  IN 1D, ORAL
     Route: 048
     Dates: start: 20130401, end: 20130404
  2. BUTRANS (BUPRENORPHINE) [Concomitant]
  3. CALCICHEW (CALCIUM CARBONATE) [Concomitant]
  4. CITALOPRAM (CITALOPRAM) [Concomitant]
  5. CLOPIDOGREL (CLOPIDOGREL) [Concomitant]
  6. DALTEPARIN (DALTEPARIN) [Concomitant]
  7. FUROSEMIDE (FUROSEMIDE) [Concomitant]
  8. GABAPENTIN (GABAPENTIN) [Concomitant]
  9. ISOSORBIDE (ISOSORBIDE) [Concomitant]
  10. LIDOCAINE (LIDOCAINE) [Concomitant]
  11. RAMIPRIL (RAMIPRIL) [Concomitant]
  12. RANITIDINE (RANITIDINE) [Concomitant]
  13. SIMVASTATIN (SIMVASTATIN) [Concomitant]

REACTIONS (1)
  - Myoclonus [None]
